FAERS Safety Report 16153605 (Version 5)
Quarter: 2021Q2

REPORT INFORMATION
  Report Type: Other
  Country: JP (occurrence: JP)
  Receive Date: 20190403
  Receipt Date: 20210609
  Transmission Date: 20210716
  Serious: Yes (Other)
  Sender: FDA-Public Use
  Company Number: JP-ROCHE-2295381

PATIENT
  Age: 43 Year
  Sex: Male

DRUGS (4)
  1. ACTEMRA [Suspect]
     Active Substance: TOCILIZUMAB
     Indication: CASTLEMAN^S DISEASE
     Route: 042
  2. PREDNISOLONE. [Concomitant]
     Active Substance: PREDNISOLONE
     Indication: CASTLEMAN^S DISEASE
  3. CICLOSPORIN [Concomitant]
     Active Substance: CYCLOSPORINE
     Indication: CASTLEMAN^S DISEASE
     Route: 065
  4. METHYLPREDNISOLONE. [Concomitant]
     Active Substance: METHYLPREDNISOLONE
     Indication: CASTLEMAN^S DISEASE
     Route: 042

REACTIONS (4)
  - Off label use [Unknown]
  - Rash [Unknown]
  - Anuria [Unknown]
  - Liver disorder [Unknown]
